FAERS Safety Report 7074068-0 (Version None)
Quarter: 2010Q4

REPORT INFORMATION
  Report Type: 
  Country: None (occurrence: None)
  Receive Date: 20101029
  Receipt Date: 20101022
  Transmission Date: 20110411
  Serious: Yes (Hospitalization)
  Sender: FDA-Public Use
  Company Number: AR-ROCHE-723756

PATIENT
  Sex: Female
  Weight: 61 kg

DRUGS (9)
  1. BEVACIZUMAB [Suspect]
     Indication: RENAL CELL CARCINOMA
     Route: 042
     Dates: start: 20100809, end: 20100823
  2. BEVACIZUMAB [Suspect]
     Route: 042
     Dates: start: 20100825
  3. INTERFERON ALFA [Suspect]
     Indication: RENAL CELL CARCINOMA
     Route: 058
     Dates: start: 20100809, end: 20100823
  4. INTERFERON ALFA [Suspect]
     Route: 058
     Dates: start: 20100825
  5. ENALAPRIL MALEATE [Concomitant]
     Indication: HYPERTENSION
     Dates: start: 20040101
  6. ATENOLOL [Concomitant]
     Indication: HYPERTENSION
     Dates: start: 20040101
  7. OMEPRAZOLE [Concomitant]
     Dates: start: 20060101
  8. METHADONE [Concomitant]
     Indication: PAIN
     Dates: start: 20100401
  9. PARACETAMOL [Concomitant]
     Indication: PROPHYLAXIS
     Dates: start: 20100809

REACTIONS (1)
  - CONFUSIONAL STATE [None]
